FAERS Safety Report 16489405 (Version 1)
Quarter: 2019Q2

REPORT INFORMATION
  Report Type: Spontaneous
  Country: US (occurrence: US)
  Receive Date: 20190628
  Receipt Date: 20190628
  Transmission Date: 20190711
  Serious: No
  Sender: FDA-Public Use
  Company Number: US-PFIZER INC-2019265675

PATIENT
  Age: 52 Year
  Sex: Female
  Weight: 93.89 kg

DRUGS (1)
  1. GABAPENTIN. [Suspect]
     Active Substance: GABAPENTIN
     Dosage: 100 MG, 3X/DAY
     Route: 048

REACTIONS (5)
  - Intentional product misuse [Unknown]
  - Hangover [Unknown]
  - Malaise [Unknown]
  - Feeling abnormal [Unknown]
  - Enuresis [Unknown]
